FAERS Safety Report 19491164 (Version 1)
Quarter: 2021Q3

REPORT INFORMATION
  Report Type: Spontaneous
  Country: US (occurrence: US)
  Receive Date: 20210705
  Receipt Date: 20210705
  Transmission Date: 20211014
  Serious: No
  Sender: FDA-Public Use
  Company Number: US-RECKITT BENCKISER HEALTHCARE INT LIMITED-RB-81036-2021

PATIENT
  Sex: Male

DRUGS (1)
  1. MUCINEX DM [Suspect]
     Active Substance: DEXTROMETHORPHAN HYDROBROMIDE\GUAIFENESIN
     Indication: TINNITUS
     Dosage: 1200 MILLIGRAM, QD
     Route: 065
     Dates: start: 202011

REACTIONS (1)
  - Drug ineffective for unapproved indication [Not Recovered/Not Resolved]
